FAERS Safety Report 6843710-9 (Version None)
Quarter: 2010Q3

REPORT INFORMATION
  Report Type: 
  Country: None (occurrence: None)
  Receive Date: 20100715
  Receipt Date: 20100707
  Transmission Date: 20110219
  Serious: Yes (Hospitalization)
  Sender: FDA-Public Use
  Company Number: US-JNJFOC-20100608358

PATIENT
  Sex: Female
  Weight: 63.5 kg

DRUGS (10)
  1. DURAGESIC-100 [Suspect]
     Indication: FIBROMYALGIA
     Route: 062
  2. DURAGESIC-100 [Suspect]
     Indication: SYSTEMIC LUPUS ERYTHEMATOSUS
     Route: 062
  3. DURAGESIC-100 [Suspect]
     Route: 062
  4. DURAGESIC-100 [Suspect]
     Route: 062
  5. DURAGESIC-100 [Suspect]
     Indication: PRODUCT USED FOR UNKNOWN INDICATION
     Route: 062
  6. VITAMIN B-12 [Concomitant]
     Indication: SYSTEMIC LUPUS ERYTHEMATOSUS
     Route: 030
  7. CELEXA [Concomitant]
     Indication: ANXIETY
     Route: 048
  8. DEXILANT [Concomitant]
     Indication: GASTRIC DISORDER
     Route: 048
  9. SANDOSTATIN [Concomitant]
     Indication: CLOSTRIDIAL INFECTION
     Route: 050
  10. DAVP [Concomitant]
     Indication: THROMBOSIS
     Route: 055

REACTIONS (3)
  - INFECTION [None]
  - PAIN [None]
  - SYSTEMIC LUPUS ERYTHEMATOSUS [None]
